FAERS Safety Report 13072245 (Version 6)
Quarter: 2017Q3

REPORT INFORMATION
  Report Type: Report from Study
  Country: US (occurrence: US)
  Receive Date: 20161229
  Receipt Date: 20170815
  Transmission Date: 20171127
  Serious: No
  Sender: FDA-Public Use
  Company Number: US-ACTELION-A-NJ2016-146926

PATIENT
  Age: 78 Year
  Sex: Female

DRUGS (5)
  1. OPSUMIT [Suspect]
     Active Substance: MACITENTAN
     Indication: PULMONARY HYPERTENSION
     Dosage: 10 MG, QD
     Route: 048
  2. ADCIRCA [Concomitant]
     Active Substance: TADALAFIL
  3. TYVASO [Suspect]
     Active Substance: TREPROSTINIL
     Indication: PRODUCT USED FOR UNKNOWN INDICATION
     Dosage: UNK
     Route: 065
     Dates: start: 20170505
  4. TYVASO [Suspect]
     Active Substance: TREPROSTINIL
     Dosage: UNK
     Route: 065
     Dates: start: 201705
  5. ORENITRAM [Concomitant]
     Active Substance: TREPROSTINIL

REACTIONS (24)
  - Malaise [Unknown]
  - Headache [Unknown]
  - Asthenia [Unknown]
  - Hepatic enzyme increased [Unknown]
  - Aspartate aminotransferase increased [Unknown]
  - Nausea [Unknown]
  - Poor peripheral circulation [Unknown]
  - Weight decreased [Unknown]
  - Ocular icterus [Unknown]
  - Dyspnoea [Unknown]
  - Faeces discoloured [Unknown]
  - Pain [Unknown]
  - Fatigue [Unknown]
  - Oedema [Unknown]
  - Cough [Recovering/Resolving]
  - Hepatitis B virus test positive [Unknown]
  - Abdominal discomfort [Unknown]
  - Blood alkaline phosphatase increased [Unknown]
  - Right ventricular systolic pressure increased [Unknown]
  - Insomnia [Unknown]
  - Decreased appetite [Unknown]
  - Abdominal pain upper [Unknown]
  - Chest pain [Unknown]
  - Nasopharyngitis [Recovering/Resolving]
